FAERS Safety Report 7914483-3 (Version None)
Quarter: 2011Q4

REPORT INFORMATION
  Report Type: 
  Country: None (occurrence: None)
  Receive Date: 20111110
  Receipt Date: 20111028
  Transmission Date: 20120403
  Serious: Yes (Hospitalization, Other)
  Sender: FDA-Public Use
  Company Number: 2009AL001432

PATIENT
  Age: 66 Year
  Sex: Female
  Weight: 64.4108 kg

DRUGS (46)
  1. SOTALOL HCL [Concomitant]
  2. PREVACID [Concomitant]
  3. CORDARONE [Concomitant]
  4. DOXYCYCLINE [Concomitant]
  5. GUAIFENESIN [Concomitant]
  6. PROPAFENONE HCL [Concomitant]
  7. NASACORT [Concomitant]
  8. ATENOLOL [Concomitant]
  9. NORTRIPTYLINE HCL [Concomitant]
  10. TIAZAC [Concomitant]
  11. RHTHYMOL [Concomitant]
  12. SYNTHROID [Concomitant]
  13. CALCIUM [Concomitant]
  14. MIRALAX [Concomitant]
  15. AZMACORT [Concomitant]
  16. SYNTHROID [Concomitant]
  17. TYLENOL ARTHRITIS EXTENDED RELEASE [Concomitant]
  18. WARFARIN SODIUM [Concomitant]
  19. DILTIAZEM HCL [Concomitant]
  20. HYDROCHLOROTHIAZIDE [Concomitant]
  21. NEURONTIN [Concomitant]
  22. CHONDROITIN [Concomitant]
  23. METOPROLOL SUCCINATE [Concomitant]
  24. NORVASC [Concomitant]
  25. MAXZIDE [Concomitant]
  26. PREMARIN [Concomitant]
  27. LOPRESSOR [Concomitant]
  28. HYDROCODONE BITARTRATE [Concomitant]
  29. FISH OIL [Concomitant]
  30. DIGOXIN [Suspect]
     Indication: ATRIAL FIBRILLATION
     Dosage: 0.25 MG;QD;PO
     Route: 048
     Dates: start: 20070528, end: 20091009
  31. REGLAN [Concomitant]
  32. TRIAMTERENE [Concomitant]
  33. ALLEGRA [Concomitant]
  34. CALCIUM-VITAMIN D [Concomitant]
  35. LIPITOR [Concomitant]
  36. PRILOSEC [Concomitant]
  37. CALCIUM CARBONATE [Concomitant]
  38. CECLOR [Concomitant]
  39. METHYLPREDNISOLONE [Concomitant]
  40. ULTRACET [Concomitant]
  41. BEXTRA [Concomitant]
  42. IBUPROFEN [Concomitant]
  43. GLUCOSAMINE [Concomitant]
  44. MICARDIS [Concomitant]
  45. OMEPRAZOLE [Concomitant]
  46. ULTRAVATE [Concomitant]

REACTIONS (61)
  - UPPER-AIRWAY COUGH SYNDROME [None]
  - FALL [None]
  - ANXIETY [None]
  - VISUAL IMPAIRMENT [None]
  - ANGINA PECTORIS [None]
  - ATRIOVENTRICULAR BLOCK [None]
  - HYPOACUSIS [None]
  - MYALGIA [None]
  - INSOMNIA [None]
  - ATRIAL FLUTTER [None]
  - CHOLELITHIASIS [None]
  - MENIERE'S DISEASE [None]
  - DRUG INTOLERANCE [None]
  - FEELING JITTERY [None]
  - HYPERLIPIDAEMIA [None]
  - TRICUSPID VALVE INCOMPETENCE [None]
  - BRADYCARDIA [None]
  - FIBROCYSTIC BREAST DISEASE [None]
  - ROAD TRAFFIC ACCIDENT [None]
  - OSTEOARTHRITIS [None]
  - INNER EAR DISORDER [None]
  - VESTIBULAR DISORDER [None]
  - UPPER RESPIRATORY TRACT INFECTION [None]
  - RASH [None]
  - PHLEBITIS [None]
  - CEREBRAL ATROPHY [None]
  - ATRIAL FIBRILLATION [None]
  - INTERNATIONAL NORMALISED RATIO INCREASED [None]
  - OEDEMA PERIPHERAL [None]
  - ORTHOSTATIC INTOLERANCE [None]
  - ERUCTATION [None]
  - HYPERTENSION [None]
  - SINUS CONGESTION [None]
  - LABYRINTHITIS [None]
  - MYELITIS TRANSVERSE [None]
  - NERVOUSNESS [None]
  - TOXIC NODULAR GOITRE [None]
  - VENOUS INSUFFICIENCY [None]
  - WEIGHT DECREASED [None]
  - ILEITIS [None]
  - PAIN [None]
  - THYROID DISORDER [None]
  - MUSCLE SPASMS [None]
  - NEUROPATHY PERIPHERAL [None]
  - FIBROMYALGIA [None]
  - VARICOSE VEIN [None]
  - POST-TRAUMATIC NECK SYNDROME [None]
  - INTERVERTEBRAL DISC DEGENERATION [None]
  - HYPOTHYROIDISM [None]
  - DECREASED APPETITE [None]
  - FIBROMA [None]
  - HYPOTENSION [None]
  - SINUSITIS [None]
  - BALANCE DISORDER [None]
  - OVERDOSE [None]
  - MENTAL DISORDER [None]
  - GASTROOESOPHAGEAL REFLUX DISEASE [None]
  - NASAL CONGESTION [None]
  - VITREOUS FLOATERS [None]
  - BLOOD TRIGLYCERIDES INCREASED [None]
  - MITRAL VALVE INCOMPETENCE [None]
